FAERS Safety Report 4382318-4 (Version None)
Quarter: 2004Q2

REPORT INFORMATION
  Report Type: 
  Country: None (occurrence: None)
  Receive Date: 20040616
  Receipt Date: 20040604
  Transmission Date: 20050107
  Serious: Yes (Life-Threatening, Hospitalization)
  Sender: FDA-Public Use
  Company Number: HQWYE261104JUN04

PATIENT
  Age: 74 Year
  Sex: Male

DRUGS (3)
  1. OSTELUC (ETODOLAC, UNSPEC) [Suspect]
     Indication: PAIN IN EXTREMITY
     Dosage: ONE TO THREE TABLETS DAILY
     Route: 048
     Dates: start: 20040121, end: 20040218
  2. OMEPRAZOLE [Suspect]
     Indication: GASTRIC ULCER
     Dosage: 20 MG 1X PER 1 DAY
     Route: 048
     Dates: start: 20030222
  3. PREDNISOLONE [Suspect]
     Indication: THROMBOCYTOPENIA
     Dosage: 15 MG DAILY
     Route: 048
     Dates: start: 20020208

REACTIONS (4)
  - CONDITION AGGRAVATED [None]
  - CONJUNCTIVAL HAEMORRHAGE [None]
  - HAEMORRHAGE SUBCUTANEOUS [None]
  - THROMBOCYTOPENIA [None]
